FAERS Safety Report 5678225-7 (Version None)
Quarter: 2008Q1

REPORT INFORMATION
  Report Type: 
  Country: None (occurrence: None)
  Receive Date: 20080320
  Receipt Date: 20080304
  Transmission Date: 20080703
  Serious: Yes (Other)
  Sender: FDA-Public Use
  Company Number: ENTC2008-0065

PATIENT
  Age: 70 Year
  Sex: Male

DRUGS (3)
  1. STALEVO 100 [Suspect]
  2. REQUIP [Concomitant]
  3. SYMMETREL [Concomitant]

REACTIONS (1)
  - SPLEEN DISORDER [None]
